FAERS Safety Report 21684263 (Version 1)
Quarter: 2022Q4

REPORT INFORMATION
  Report Type: Spontaneous
  Country: US (occurrence: None)
  Receive Date: 20221202
  Receipt Date: 20221202
  Transmission Date: 20230112
  Serious: No
  Sender: FDA-Public Use
  Company Number: None

PATIENT
  Age: 62 Year
  Sex: Female

DRUGS (1)
  1. ACTEMRA [Suspect]
     Active Substance: TOCILIZUMAB
     Indication: Rheumatoid arthritis
     Dosage: OTHER STRENGTH : 162MCG/0.9ML;?FREQUENCY : EVERY OTHER WEEK;?
     Route: 058
     Dates: start: 202207

REACTIONS (1)
  - Cerebrovascular accident [None]
